FAERS Safety Report 10042655 (Version 2)
Quarter: 2014Q2

REPORT INFORMATION
  Report Type: Spontaneous
  Country: ES (occurrence: ES)
  Receive Date: 20140327
  Receipt Date: 20140407
  Transmission Date: 20141212
  Serious: Yes (Death)
  Sender: FDA-Public Use
  Company Number: ES-BRISTOL-MYERS SQUIBB COMPANY-20554846

PATIENT
  Age: 66 Year
  Sex: Male

DRUGS (2)
  1. ABATACEPT SUBQ INJECTION 125MG/ML [Suspect]
     Indication: RHEUMATOID ARTHRITIS
     Dosage: ORENCIA (ABATACEPT)IV (NON SPECIFIED) 750 MG FROM 01-JUL-2012 TO 30-OCT-2013
     Route: 058
     Dates: start: 20131101, end: 20131227
  2. MORPHINE [Concomitant]
     Indication: RHEUMATOID ARTHRITIS
     Route: 048
     Dates: start: 20130601, end: 20131227

REACTIONS (1)
  - Acute myocardial infarction [Fatal]
